FAERS Safety Report 12219882 (Version 5)
Quarter: 2017Q4

REPORT INFORMATION
  Report Type: Spontaneous
  Country: IT (occurrence: IT)
  Receive Date: 20160330
  Receipt Date: 20171024
  Transmission Date: 20180320
  Serious: Yes (Life-Threatening)
  Sender: FDA-Public Use
  Company Number: IT-ROCHE-1733439

PATIENT
  Age: 44 Year
  Sex: Female

DRUGS (4)
  1. PERJETA [Suspect]
     Active Substance: PERTUZUMAB
     Indication: BREAST CANCER
     Dosage: 420 MG VIAL (GLASS) - 30 MG/ML - 1 VIAL?THERAPY INTERRUPTED
     Route: 042
     Dates: start: 20141124, end: 20160218
  2. HERCEPTIN [Suspect]
     Active Substance: TRASTUZUMAB
     Dosage: THERAPY RESUMED
     Route: 042
     Dates: start: 20170628
  3. HERCEPTIN [Suspect]
     Active Substance: TRASTUZUMAB
     Indication: BREAST CANCER
     Dosage: THERAPY INTERRUPTED
     Route: 042
     Dates: start: 20141124, end: 20160218
  4. PERJETA [Suspect]
     Active Substance: PERTUZUMAB
     Dosage: 420 MG VIAL (GLASS) - 30 MG/ML - 1 VIAL?THERAPY RESUMED
     Route: 042
     Dates: start: 20170628

REACTIONS (2)
  - Cardiotoxicity [Recovered/Resolved]
  - Forced expiratory volume decreased [Recovering/Resolving]

NARRATIVE: CASE EVENT DATE: 20160218
